FAERS Safety Report 12966510 (Version 1)
Quarter: 2016Q4

REPORT INFORMATION
  Report Type: Other
  Country: US (occurrence: US)
  Receive Date: 20161122
  Receipt Date: 20161122
  Transmission Date: 20170207
  Serious: Yes (Other)
  Sender: FDA-Public Use
  Company Number: US-AIRGAS USA-1059979

PATIENT
  Age: 3 Week
  Sex: Male
  Weight: 3 kg

DRUGS (3)
  1. PROPOFOL. [Concomitant]
     Active Substance: PROPOFOL
  2. CARBON DIOXIDE. [Suspect]
     Active Substance: CARBON DIOXIDE
     Indication: LAPAROSCOPIC SURGERY
  3. ROCURONIUM [Concomitant]
     Active Substance: ROCURONIUM BROMIDE

REACTIONS (2)
  - Air embolism [Recovered/Resolved]
  - Incorrect route of drug administration [Recovered/Resolved]
